FAERS Safety Report 25918789 (Version 1)
Quarter: 2025Q4

REPORT INFORMATION
  Report Type: Spontaneous
  Country: US (occurrence: None)
  Receive Date: 20251010
  Receipt Date: 20251010
  Transmission Date: 20260118
  Serious: Yes (Other)
  Sender: FDA-CTU
  Company Number: None

PATIENT
  Age: 62 Year
  Sex: Female
  Weight: 91 kg

DRUGS (13)
  1. TERLIPRESSIN [Suspect]
     Active Substance: TERLIPRESSIN
     Indication: Hepatorenal syndrome
     Dosage: 0.85 MG 4 TIMES  DAY INTRAVENOUS
     Route: 042
     Dates: start: 20250427, end: 20250429
  2. SODIUM CHLORIDE [Concomitant]
     Active Substance: SODIUM CHLORIDE
     Dates: start: 20250423, end: 20250429
  3. METRONIDAZOLE [Concomitant]
     Active Substance: METRONIDAZOLE
     Dates: start: 20250424, end: 20250428
  4. HEPARIN [Concomitant]
     Active Substance: HEPARIN SODIUM
     Dates: start: 20250423, end: 20250429
  5. FOLIC ACID [Concomitant]
     Active Substance: FOLIC ACID
     Dates: start: 20250423, end: 20250429
  6. CIPROFLOXACIN [Concomitant]
     Active Substance: CIPROFLOXACIN
     Dates: start: 20250423, end: 20250429
  7. ALBUMIN HUMAN [Concomitant]
     Active Substance: ALBUMIN HUMAN
     Dates: start: 20250427, end: 20250428
  8. LACTULOSE [Concomitant]
     Active Substance: LACTULOSE
     Dates: start: 20250423, end: 20250429
  9. PREDNISOLONE [Concomitant]
     Active Substance: PREDNISOLONE
     Dates: start: 20250427, end: 20250427
  10. RIFAXIMIN [Concomitant]
     Active Substance: RIFAXIMIN
     Dates: start: 20250426, end: 20250428
  11. THIAMINE [Concomitant]
     Active Substance: THIAMINE
     Dates: start: 20250423, end: 20250428
  12. venlfaxine [Concomitant]
     Dates: start: 20250424, end: 20250427
  13. ONDANSETRON [Concomitant]
     Active Substance: ONDANSETRON
     Dates: start: 20250423, end: 20250429

REACTIONS (1)
  - Respiratory failure [None]

NARRATIVE: CASE EVENT DATE: 20250428
